FAERS Safety Report 8793970 (Version 14)
Quarter: 2015Q1

REPORT INFORMATION
  Report Type: Report from Study
  Country: CA (occurrence: CA)
  Receive Date: 20120917
  Receipt Date: 20150226
  Transmission Date: 20150721
  Serious: Yes (Hospitalization, Other)
  Sender: FDA-Public Use
  Company Number: PHHY2012CA050875

PATIENT
  Age: 53 Year
  Sex: Female

DRUGS (1)
  1. SANDOSTATIN LAR DEPOT [Suspect]
     Active Substance: OCTREOTIDE ACETATE
     Indication: METASTATIC BRONCHIAL CARCINOMA
     Dosage: 30 MG, QMO
     Route: 030
     Dates: start: 20120305

REACTIONS (23)
  - Malaise [Unknown]
  - Arthralgia [Unknown]
  - Incontinence [Recovering/Resolving]
  - Nausea [Recovered/Resolved]
  - Vomiting [Recovered/Resolved]
  - Bone pain [Recovered/Resolved]
  - Diarrhoea [Recovered/Resolved]
  - Headache [Recovered/Resolved]
  - Blood pressure increased [Unknown]
  - Headache [Unknown]
  - Pain [Recovered/Resolved]
  - Groin pain [Unknown]
  - Joint injury [Unknown]
  - Fatigue [Unknown]
  - Abdominal discomfort [Unknown]
  - Vomiting [Unknown]
  - Pneumonia [Recovered/Resolved]
  - Bone cancer [Unknown]
  - Paraesthesia [Unknown]
  - Gastroenteritis viral [Recovered/Resolved]
  - Hypertonic bladder [Unknown]
  - Eructation [Recovered/Resolved]
  - Cataract [Unknown]

NARRATIVE: CASE EVENT DATE: 201206
